FAERS Safety Report 6371871-7 (Version None)
Quarter: 2009Q3

REPORT INFORMATION
  Report Type: 
  Country: None (occurrence: None)
  Receive Date: 20090923
  Receipt Date: 20090914
  Transmission Date: 20100115
  Serious: Yes (Other)
  Sender: FDA-Public Use
  Company Number: PHHY2009DE39749

PATIENT
  Age: 67 Year
  Sex: Male
  Weight: 83 kg

DRUGS (3)
  1. ZOMETA [Suspect]
     Indication: PLASMACYTOMA
     Dosage: 4 MG, UNK
     Route: 042
     Dates: end: 20081101
  2. BENDAMUSTINE [Concomitant]
     Dosage: UNK
     Route: 042
     Dates: start: 20080501, end: 20081201
  3. PREDNISONE TAB [Concomitant]
     Dosage: UNK
     Route: 042
     Dates: start: 20080501, end: 20081201

REACTIONS (1)
  - OSTEONECROSIS [None]
